FAERS Safety Report 25506983 (Version 1)
Quarter: 2025Q3

REPORT INFORMATION
  Report Type: Spontaneous
  Country: CN (occurrence: CN)
  Receive Date: 20250702
  Receipt Date: 20250702
  Transmission Date: 20251020
  Serious: Yes (Disabling)
  Sender: BEIGENE
  Company Number: CN-BEIGENE-BGN-2025-010297

PATIENT
  Age: 59 Year
  Weight: 46 kg

DRUGS (8)
  1. TISLELIZUMAB [Suspect]
     Active Substance: TISLELIZUMAB
     Indication: Oesophageal squamous cell carcinoma
     Dosage: 0.2 GRAM, Q3WK
  2. TISLELIZUMAB [Suspect]
     Active Substance: TISLELIZUMAB
     Dosage: 0.2 GRAM, Q3WK
     Route: 042
  3. TISLELIZUMAB [Suspect]
     Active Substance: TISLELIZUMAB
     Dosage: 0.2 GRAM, Q3WK
     Route: 042
  4. TISLELIZUMAB [Suspect]
     Active Substance: TISLELIZUMAB
     Dosage: 0.2 GRAM, Q3WK
  5. CISPLATIN [Concomitant]
     Active Substance: CISPLATIN
     Indication: Oesophageal squamous cell carcinoma
     Dosage: 110 MILLIGRAM, Q3WK
     Route: 041
  6. CISPLATIN [Concomitant]
     Active Substance: CISPLATIN
     Dosage: 110 MILLIGRAM, Q3WK
  7. PACLITAXEL [Concomitant]
     Active Substance: PACLITAXEL
     Indication: Oesophageal squamous cell carcinoma
     Dosage: 200 MILLIGRAM, Q3WK
     Route: 041
  8. PACLITAXEL [Concomitant]
     Active Substance: PACLITAXEL
     Dosage: 200 MILLIGRAM, Q3WK

REACTIONS (1)
  - Drug-induced liver injury [Not Recovered/Not Resolved]
